FAERS Safety Report 11082323 (Version 1)
Quarter: 2015Q2

REPORT INFORMATION
  Report Type: Spontaneous
  Country: US (occurrence: US)
  Receive Date: 20150501
  Receipt Date: 20150501
  Transmission Date: 20150821
  Serious: No
  Sender: FDA-Public Use
  Company Number: US-PFIZER INC-2015142860

PATIENT
  Age: 37 Year

DRUGS (10)
  1. HYDROCHLOROTHIAZIDE. [Suspect]
     Active Substance: HYDROCHLOROTHIAZIDE
     Indication: ESSENTIAL HYPERTENSION
     Dosage: 25 MG, DAILY
     Route: 048
     Dates: start: 20130923
  2. IBUPROFEN. [Suspect]
     Active Substance: IBUPROFEN
     Dosage: 200 MG EVERY 6 HOURS DAILY
     Route: 048
     Dates: start: 20130826
  3. MOBIC [Suspect]
     Active Substance: MELOXICAM
     Indication: SACROILIITIS
     Dosage: 1/2 -1 TAB ONCE DAILY
     Route: 048
     Dates: start: 20130826
  4. TRAMADOL HCL [Suspect]
     Active Substance: TRAMADOL HYDROCHLORIDE
     Indication: SACROILIITIS
     Dosage: 2 TABLETS 3-4 TIMES DAILY AS NEEDED
     Route: 048
     Dates: start: 20130826
  5. LYRICA [Suspect]
     Active Substance: PREGABALIN
     Indication: SACROILIITIS
     Dosage: 100 MG, UNK
     Route: 048
     Dates: end: 20141013
  6. LAMICTAL [Concomitant]
     Active Substance: LAMOTRIGINE
     Dosage: 25 MG, UNK
     Route: 048
  7. BUTALBITAL W/CAFFEINE/PARACETAMOL [Suspect]
     Active Substance: CAFFEINE
     Indication: HEADACHE
     Dosage: 1 OR 2 TABLETS EVERY 4 HOURS AS NEEDED
     Route: 048
  8. LISINOPRIL. [Suspect]
     Active Substance: LISINOPRIL
     Indication: BLOOD PRESSURE INCREASED
     Dosage: 10 MG, DAILY
     Route: 048
     Dates: start: 20131009
  9. TYLENOL [Concomitant]
     Active Substance: ACETAMINOPHEN
     Dosage: 325 MG, UNK
     Route: 048
  10. CYCLOBENZAPRINE HCL [Suspect]
     Active Substance: CYCLOBENZAPRINE HYDROCHLORIDE
     Indication: SACROILIITIS
     Dosage: 1/2 TO 1 TABLET AT BEDTIME AND UP TO 3 TIMES DAILY AS NEEDED
     Route: 048
     Dates: start: 20130826

REACTIONS (2)
  - Product use issue [Unknown]
  - Anxiety [Unknown]
